FAERS Safety Report 17842601 (Version 1)
Quarter: 2020Q2

REPORT INFORMATION
  Report Type: Report from Study
  Country: US (occurrence: US)
  Receive Date: 20200529
  Receipt Date: 20200529
  Transmission Date: 20200714
  Serious: Yes (Hospitalization)
  Sender: FDA-Public Use
  Company Number: US-EISAI MEDICAL RESEARCH-EC-2020-073824

PATIENT
  Age: 62 Year
  Sex: Male
  Weight: 109 kg

DRUGS (21)
  1. LENVIMA [Suspect]
     Active Substance: LENVATINIB
     Indication: SMALL INTESTINE CARCINOMA
  2. IRON [Concomitant]
     Active Substance: IRON
  3. DEXAMETHASONE. [Concomitant]
     Active Substance: DEXAMETHASONE
  4. HYDROCODONE-ACETAMINOPHEN [Concomitant]
     Active Substance: ACETAMINOPHEN\HYDROCODONE
  5. LEVETIRACETAM. [Concomitant]
     Active Substance: LEVETIRACETAM
  6. TAMSULOSIN HCL [Concomitant]
     Active Substance: TAMSULOSIN HYDROCHLORIDE
  7. LENVIMA [Suspect]
     Active Substance: LENVATINIB
     Indication: RENAL CANCER
     Route: 048
     Dates: start: 20200413
  8. GLUCOSAMINE-CHONDROITI [Concomitant]
  9. MEMANTINE HCL [Concomitant]
     Active Substance: MEMANTINE
  10. FENTANYL. [Concomitant]
     Active Substance: FENTANYL
  11. MORPHINE SULFATE ER [Concomitant]
     Active Substance: MORPHINE SULFATE
  12. EVEROLIMUS. [Concomitant]
     Active Substance: EVEROLIMUS
  13. AMLODIPINE BESYLATE. [Concomitant]
     Active Substance: AMLODIPINE BESYLATE
  14. TYLENOL [Concomitant]
     Active Substance: ACETAMINOPHEN
  15. VITAMIN D3 [Concomitant]
     Active Substance: CHOLECALCIFEROL
  16. CALCIUM CARBONATE. [Concomitant]
     Active Substance: CALCIUM CARBONATE
  17. OMEPRAZOLE. [Concomitant]
     Active Substance: OMEPRAZOLE
  18. ELIQUIS [Concomitant]
     Active Substance: APIXABAN
  19. ENTYVIO [Concomitant]
     Active Substance: VEDOLIZUMAB
  20. MULTIVITAMINS [Concomitant]
     Active Substance: VITAMINS
  21. CLOTRIMAZOLE AND BETAMETHASONE DIPROPIONATE [Concomitant]
     Active Substance: BETAMETHASONE\BETAMETHASONE DIPROPIONATE\CLOTRIMAZOLE

REACTIONS (5)
  - Pulmonary embolism [Unknown]
  - Fatigue [Unknown]
  - Asthenia [Unknown]
  - Alopecia [Unknown]
  - Deep vein thrombosis [Unknown]

NARRATIVE: CASE EVENT DATE: 202004
